FAERS Safety Report 16994211 (Version 1)
Quarter: 2019Q4

REPORT INFORMATION
  Report Type: Report from Study
  Country: PK (occurrence: PK)
  Receive Date: 20191105
  Receipt Date: 20191105
  Transmission Date: 20200122
  Serious: Yes (Death)
  Sender: FDA-Public Use
  Company Number: PK-INCYTE CORPORATION-2019IN010715

PATIENT

DRUGS (1)
  1. JAKAVI [Suspect]
     Active Substance: RUXOLITINIB
     Indication: PRIMARY MYELOFIBROSIS
     Dosage: 10 MG (2 TABS OF 5 MG BD), BID
     Route: 048
     Dates: start: 20180731, end: 20181117

REACTIONS (1)
  - Death [Fatal]

NARRATIVE: CASE EVENT DATE: 20181119
